FAERS Safety Report 23830165 (Version 4)
Quarter: 2024Q4

REPORT INFORMATION
  Report Type: Spontaneous
  Country: US (occurrence: US)
  Receive Date: 20240508
  Receipt Date: 20241022
  Transmission Date: 20250115
  Serious: No
  Sender: Unknown Manufacturer
  Company Number: US-862174955-ML2024-02794

PATIENT
  Age: 93 Year
  Sex: Female

DRUGS (1)
  1. TRAVOPROST [Suspect]
     Active Substance: TRAVOPROST
     Indication: Glaucoma
     Route: 047

REACTIONS (2)
  - Product dose omission issue [Unknown]
  - Product container issue [Unknown]
